FAERS Safety Report 15261060 (Version 1)
Quarter: 2018Q3

REPORT INFORMATION
  Report Type: Spontaneous
  Country: CA (occurrence: CA)
  Receive Date: 20180809
  Receipt Date: 20180809
  Transmission Date: 20181010
  Serious: Yes (Hospitalization, Disabling)
  Sender: FDA-Public Use
  Company Number: CA-TEVA-2018-CA-936259

PATIENT
  Age: 8 Year
  Sex: Female

DRUGS (4)
  1. LAMOTRIGINE. [Concomitant]
     Active Substance: LAMOTRIGINE
  2. VALPROIC ACID. [Concomitant]
     Active Substance: VALPROIC ACID
  3. QUETIAPINE. [Suspect]
     Active Substance: QUETIAPINE
     Indication: OPPOSITIONAL DEFIANT DISORDER
     Route: 048
  4. CONCERTA [Suspect]
     Active Substance: METHYLPHENIDATE HYDROCHLORIDE
     Indication: ATTENTION DEFICIT/HYPERACTIVITY DISORDER
     Route: 048

REACTIONS (5)
  - Dyskinesia [Recovering/Resolving]
  - Gait inability [Recovering/Resolving]
  - Toxicity to various agents [Recovering/Resolving]
  - Extrapyramidal disorder [Recovering/Resolving]
  - Tremor [Recovering/Resolving]
